FAERS Safety Report 8514642 (Version 3)
Quarter: 2015Q3

REPORT INFORMATION
  Report Type: Spontaneous
  Country: US (occurrence: US)
  Receive Date: 20120416
  Receipt Date: 20150828
  Transmission Date: 20151125
  Serious: Yes (Death, Other)
  Sender: FDA-Public Use
  Company Number: US-ELI_LILLY_AND_COMPANY-US201203009383

PATIENT
  Age: 73 Year
  Sex: Female

DRUGS (1)
  1. FORTEO [Suspect]
     Active Substance: TERIPARATIDE
     Indication: OSTEOPOROSIS
     Dosage: 20 UG, QD
     Route: 065
     Dates: start: 2007

REACTIONS (11)
  - Basal cell carcinoma [Unknown]
  - Gait disturbance [Unknown]
  - Gastric neoplasm [Unknown]
  - Neoplasm [Unknown]
  - Abdominal pain [Unknown]
  - Cough [Unknown]
  - Vomiting [Unknown]
  - Lung neoplasm [Unknown]
  - Osteosarcoma [Fatal]
  - Skin lesion [Unknown]
  - Death [Fatal]

NARRATIVE: CASE EVENT DATE: 200902
